FAERS Safety Report 6824092-5 (Version None)
Quarter: 2010Q3

REPORT INFORMATION
  Report Type: 
  Country: None (occurrence: None)
  Receive Date: 20100708
  Receipt Date: 20060930
  Transmission Date: 20110219
  Serious: No
  Sender: FDA-Public Use
  Company Number: US-PFIZER INC-2006121078

PATIENT
  Sex: Female
  Weight: 67.59 kg

DRUGS (3)
  1. CHANTIX [Suspect]
     Indication: SMOKING CESSATION THERAPY
     Dates: start: 20060901
  2. PREVACID [Concomitant]
  3. KLONOPIN [Concomitant]

REACTIONS (3)
  - ABDOMINAL PAIN UPPER [None]
  - DIARRHOEA [None]
  - PANIC ATTACK [None]
